FAERS Safety Report 4354521-0 (Version None)
Quarter: 2004Q2

REPORT INFORMATION
  Report Type: 
  Country: None (occurrence: None)
  Receive Date: 20040503
  Receipt Date: 20040423
  Transmission Date: 20050107
  Serious: Yes (Hospitalization, Other)
  Sender: FDA-Public Use
  Company Number: 2004-03-1149

PATIENT
  Age: 79 Year
  Sex: Female
  Weight: 64 kg

DRUGS (11)
  1. NASONEX [Suspect]
     Dosage: 2 SPRAY QD NASAL SPRAY
     Route: 045
  2. BLINDED - ZOLENDRONATE STUDY BLINDED INTRAVENOUS FROM 11/14/2003 TO 11 [Suspect]
     Indication: OSTEOPOROSIS POSTMENOPAUSAL
     Dosage: BLINDED* INTRAVENOUS
     Route: 042
     Dates: start: 20021113, end: 20021113
  3. OXYGEN [Suspect]
  4. CALCIUM [Concomitant]
  5. VITAMIN D [Concomitant]
  6. TOPROL-XL [Concomitant]
  7. PEPCID [Concomitant]
  8. PREVACID [Concomitant]
  9. SYNTHROID [Concomitant]
  10. ADVAIR (SALMETEROL/FLUTICASONE) [Concomitant]
  11. ASPIRIN [Concomitant]

REACTIONS (11)
  - ARRHYTHMIA [None]
  - ATRIAL FIBRILLATION [None]
  - ATRIOVENTRICULAR BLOCK [None]
  - CARDIAC PROCEDURE COMPLICATION [None]
  - EPISTAXIS [None]
  - HAEMOPTYSIS [None]
  - HEART RATE INCREASED [None]
  - PALPITATIONS [None]
  - PNEUMOTHORAX [None]
  - POST PROCEDURAL COMPLICATION [None]
  - SICK SINUS SYNDROME [None]
